FAERS Safety Report 6927958-0 (Version None)
Quarter: 2010Q3

REPORT INFORMATION
  Report Type: 
  Country: None (occurrence: None)
  Receive Date: 20100817
  Receipt Date: 20100809
  Transmission Date: 20110219
  Serious: Yes (Hospitalization)
  Sender: FDA-Public Use
  Company Number: US-ELI_LILLY_AND_COMPANY-US200910005439

PATIENT
  Sex: Male
  Weight: 108.84 kg

DRUGS (8)
  1. BYETTA [Suspect]
     Dosage: UNK, UNKNOWN
     Route: 065
     Dates: start: 20070501, end: 20080421
  2. INSULIN [Concomitant]
  3. ORAL ANTIDIABETICS [Concomitant]
  4. DIURETICS [Concomitant]
  5. BETA BLOCKING AGENTS [Concomitant]
  6. TYLENOL                                 /SCH/ [Concomitant]
  7. ANTIHYPERTENSIVES [Concomitant]
  8. THYROID THERAPY [Concomitant]

REACTIONS (7)
  - CARDIAC PACEMAKER INSERTION [None]
  - DIZZINESS [None]
  - HOSPITALISATION [None]
  - NAUSEA [None]
  - OFF LABEL USE [None]
  - PNEUMONIA [None]
  - WEIGHT DECREASED [None]
